FAERS Safety Report 24275485 (Version 2)
Quarter: 2024Q3

REPORT INFORMATION
  Report Type: Report from Study
  Country: MX (occurrence: MX)
  Receive Date: 20240903
  Receipt Date: 20240904
  Transmission Date: 20241016
  Serious: Yes (Disabling, Other)
  Sender: UNITED THERAPEUTICS
  Company Number: MX-UNITED THERAPEUTICS-UNT-2024-013612

PATIENT
  Age: 69 Year
  Weight: 40 kg

DRUGS (2)
  1. TREPROSTINIL SODIUM [Suspect]
     Active Substance: TREPROSTINIL SODIUM
     Indication: Pulmonary arterial hypertension
     Dosage: UNK (2.00 U/H [0.02 ML/HR]), CONTINUING
  2. TREPROSTINIL SODIUM [Suspect]
     Active Substance: TREPROSTINIL SODIUM
     Dosage: UNK, CONTINUING

REACTIONS (8)
  - Catheter site pain [Not Recovered/Not Resolved]
  - Mobility decreased [Unknown]
  - Infusion site inflammation [Not Recovered/Not Resolved]
  - Infusion site oedema [Not Recovered/Not Resolved]
  - Infusion site erythema [Not Recovered/Not Resolved]
  - Catheter site swelling [Not Recovered/Not Resolved]
  - Peripheral swelling [Not Recovered/Not Resolved]
  - Device maintenance issue [Unknown]
